FAERS Safety Report 4344701-2 (Version None)
Quarter: 2004Q2

REPORT INFORMATION
  Report Type: 
  Country: None (occurrence: None)
  Receive Date: 20040420
  Receipt Date: 20040408
  Transmission Date: 20050107
  Serious: Yes (Death, Hospitalization, Other)
  Sender: FDA-Public Use
  Company Number: 2004198421AT

PATIENT
  Age: 62 Year
  Sex: Female

DRUGS (6)
  1. CAMPTOSAR [Suspect]
     Indication: COLORECTAL CANCER METASTATIC
     Dosage: 180 MG/M2, CYCLE 2 , IV
     Route: 042
     Dates: start: 20031216, end: 20031216
  2. CETUXIMAB [Suspect]
     Indication: COLORECTAL CANCER METASTATIC
     Dosage: 250 MG/M2, CYCLE 4, IV
     Route: 042
     Dates: start: 20040116, end: 20040116
  3. CEFPODOXIME PROXETIL [Concomitant]
  4. HYDROMORPHONE [Concomitant]
  5. ISOPHANE INSULIN [Concomitant]
  6. NOZINAN [Concomitant]

REACTIONS (17)
  - ANAEMIA [None]
  - COLORECTAL CANCER METASTATIC [None]
  - DERMATITIS [None]
  - DIARRHOEA [None]
  - DISEASE PROGRESSION [None]
  - DIZZINESS [None]
  - DRUG TOXICITY [None]
  - EXCORIATION [None]
  - FATIGUE [None]
  - GENERAL PHYSICAL HEALTH DETERIORATION [None]
  - HAEMATOCHEZIA [None]
  - INTESTINAL HYPOMOTILITY [None]
  - LEUKOPENIA [None]
  - MULTI-ORGAN FAILURE [None]
  - PARAESTHESIA [None]
  - PETECHIAE [None]
  - VISUAL DISTURBANCE [None]
